FAERS Safety Report 7980554-9 (Version None)
Quarter: 2011Q4

REPORT INFORMATION
  Report Type: 
  Country: None (occurrence: None)
  Receive Date: 20111214
  Receipt Date: 20111205
  Transmission Date: 20120403
  Serious: Yes (Other)
  Sender: FDA-Public Use
  Company Number: BE-ABBOTT-11P-013-0853718-00

PATIENT
  Age: 42 Year
  Sex: Female

DRUGS (8)
  1. HUMIRA [Suspect]
     Route: 058
     Dates: end: 20111012
  2. LEVOTHYROXINE SODIUM [Concomitant]
     Indication: HYPOTHYROIDISM
     Dosage: DAILY
     Route: 048
     Dates: start: 20090211
  3. LEVOTHYROXINE SODIUM [Concomitant]
     Indication: BLOOD THYROID STIMULATING HORMONE INCREASED
  4. L-DOPA [Suspect]
     Indication: NEUROLOGICAL SYMPTOM
  5. LEXOTAN [Concomitant]
     Indication: PRODUCT USED FOR UNKNOWN INDICATION
     Dosage: PRN
     Route: 048
     Dates: start: 20050701
  6. HUMIRA [Suspect]
     Indication: CROHN'S DISEASE
     Dates: start: 20071123
  7. HUMIRA [Suspect]
  8. NEXIUM [Concomitant]
     Indication: OESOPHAGITIS
     Route: 048
     Dates: start: 20040304

REACTIONS (6)
  - CENTRAL NERVOUS SYSTEM LESION [None]
  - NEUROLOGICAL SYMPTOM [None]
  - MUSCLE RIGIDITY [None]
  - OSTEOARTHRITIS [None]
  - NAUSEA [None]
  - ORTHOSTATIC HYPOTENSION [None]
